FAERS Safety Report 5282739-1 (Version None)
Quarter: 2007Q1

REPORT INFORMATION
  Report Type: 
  Country: None (occurrence: None)
  Receive Date: 20061226
  Receipt Date: 20061024
  Transmission Date: 20070707
  Serious: No
  Sender: FDA-Public Use
  Company Number: 2006PV023866

PATIENT
  Age: 48 Year
  Sex: Male
  Weight: 99.7913 kg

DRUGS (16)
  1. SYMLIN [Suspect]
     Indication: DIABETES MELLITUS NON-INSULIN-DEPENDENT
     Dosage: SEE IMAGE
     Route: 058
     Dates: start: 20061011, end: 20061012
  2. SYMLIN [Suspect]
     Indication: DIABETES MELLITUS NON-INSULIN-DEPENDENT
     Dosage: SEE IMAGE
     Route: 058
     Dates: start: 20061012, end: 20061021
  3. SYMLIN [Suspect]
     Indication: DIABETES MELLITUS NON-INSULIN-DEPENDENT
     Dosage: SEE IMAGE
     Route: 058
     Dates: start: 20061022
  4. HUMALOG [Concomitant]
  5. METOLAZONE [Concomitant]
  6. FUROSEMIDE [Concomitant]
  7. PREDNISONE TAB [Concomitant]
  8. METOPROLOL SUCCINATE [Concomitant]
  9. A-THYROZINE [Concomitant]
  10. ALLOPURINOL [Concomitant]
  11. AZITHROMYCIN [Concomitant]
  12. GENGRAF [Concomitant]
  13. ADVAIR DISKUS 100/50 [Concomitant]
  14. FLUOXETINE [Concomitant]
  15. POTASSIUM CHLORIDE [Concomitant]
  16. FUROSEMIDE [Concomitant]

REACTIONS (7)
  - CONFUSIONAL STATE [None]
  - DRY MOUTH [None]
  - EARLY SATIETY [None]
  - NAUSEA [None]
  - RETCHING [None]
  - VOMITING [None]
  - WEIGHT DECREASED [None]
